FAERS Safety Report 9802988 (Version 2)
Quarter: 2014Q1

REPORT INFORMATION
  Report Type: Spontaneous
  Country: JP (occurrence: JP)
  Receive Date: 20140108
  Receipt Date: 20140108
  Transmission Date: 20141002
  Serious: Yes (Other)
  Sender: FDA-Public Use
  Company Number: JP-ACCORD-021119

PATIENT
  Age: 31 Year
  Sex: Male

DRUGS (7)
  1. PYRAZINAMIDE [Suspect]
     Indication: PRODUCT USED FOR UNKNOWN INDICATION
  2. ISONIAZIDE [Suspect]
     Indication: PRODUCT USED FOR UNKNOWN INDICATION
     Dosage: ISONIAZID
  3. RIFAMPICIN [Suspect]
     Indication: PRODUCT USED FOR UNKNOWN INDICATION
  4. ETHAMBUTOL [Suspect]
     Indication: PRODUCT USED FOR UNKNOWN INDICATION
  5. LEVOFLOXACIN [Suspect]
     Indication: PRODUCT USED FOR UNKNOWN INDICATION
  6. ETHIONAMIDE [Suspect]
     Indication: PRODUCT USED FOR UNKNOWN INDICATION
  7. ALLOPURINOL [Suspect]
     Indication: PRODUCT USED FOR UNKNOWN INDICATION

REACTIONS (1)
  - Drug reaction with eosinophilia and systemic symptoms [Unknown]
